FAERS Safety Report 18272416 (Version 1)
Quarter: 2020Q3

REPORT INFORMATION
  Report Type: Spontaneous
  Country: US (occurrence: US)
  Receive Date: 20200916
  Receipt Date: 20200916
  Transmission Date: 20201103
  Serious: Yes (Disabling, Other)
  Sender: FDA-Public Use
  Company Number: US-JNJFOC-20200905839

PATIENT
  Age: 20 Year
  Sex: Male
  Weight: 65.83 kg

DRUGS (11)
  1. INVEGA [Suspect]
     Active Substance: PALIPERIDONE
     Indication: BIPOLAR DISORDER
     Dosage: SERIAL NUMBER: 130508688588
     Route: 048
     Dates: start: 202001
  2. INVEGA [Suspect]
     Active Substance: PALIPERIDONE
     Route: 048
     Dates: start: 2020
  3. LITHIUM. [Concomitant]
     Active Substance: LITHIUM
     Indication: PRODUCT USED FOR UNKNOWN INDICATION
     Dosage: SERIAL NUMBER: 118537602818
  4. INVEGA [Suspect]
     Active Substance: PALIPERIDONE
     Dosage: EVERY 3 TO 4 DAYS
     Route: 048
     Dates: start: 2020
  5. COGENTIN [Suspect]
     Active Substance: BENZTROPINE MESYLATE
     Indication: MUSCLE RIGIDITY
     Dates: start: 2020
  6. INVEGA [Suspect]
     Active Substance: PALIPERIDONE
     Route: 048
     Dates: start: 2020
  7. INVEGA [Suspect]
     Active Substance: PALIPERIDONE
     Dosage: FOR 2 DAYS
     Route: 048
     Dates: start: 2020
  8. COGENTIN [Suspect]
     Active Substance: BENZTROPINE MESYLATE
     Indication: TREMOR
  9. INVEGA [Suspect]
     Active Substance: PALIPERIDONE
     Route: 048
     Dates: start: 2020
  10. INVEGA [Suspect]
     Active Substance: PALIPERIDONE
     Route: 048
     Dates: start: 2020
  11. INVEGA [Suspect]
     Active Substance: PALIPERIDONE
     Route: 048
     Dates: start: 2020

REACTIONS (5)
  - Muscle rigidity [Recovered/Resolved]
  - Ileus [Recovered/Resolved]
  - Tremor [Recovered/Resolved]
  - Chorea [Recovered/Resolved]
  - Apathy [Unknown]

NARRATIVE: CASE EVENT DATE: 2020
